FAERS Safety Report 7004968-9 (Version None)
Quarter: 2010Q3

REPORT INFORMATION
  Report Type: 
  Country: None (occurrence: None)
  Receive Date: 20100920
  Receipt Date: 20100920
  Transmission Date: 20110219
  Serious: Yes (Other)
  Sender: FDA-Public Use
  Company Number: None

PATIENT
  Sex: Male
  Weight: 90 kg

DRUGS (1)
  1. MAXODERM PATENTED LOTION NOT INDICATED BARMENSEN LABS, [Suspect]
     Indication: ERECTILE DYSFUNCTION
     Dosage: LESS THAN 1 OZ 1 TIME APPLIED WITH HAND
     Dates: start: 20100119

REACTIONS (4)
  - BURNING SENSATION [None]
  - DISCOMFORT [None]
  - RASH MACULO-PAPULAR [None]
  - SKIN BURNING SENSATION [None]
